FAERS Safety Report 11038338 (Version 2)
Quarter: 2015Q4

REPORT INFORMATION
  Report Type: Spontaneous
  Country: US (occurrence: US)
  Receive Date: 20150416
  Receipt Date: 20151005
  Transmission Date: 20160304
  Serious: No
  Sender: FDA-Public Use
  Company Number: US-009507513-1504USA016991

PATIENT
  Age: 28 Year
  Sex: Male

DRUGS (3)
  1. PROSCAR [Suspect]
     Active Substance: FINASTERIDE
     Indication: ANDROGENETIC ALOPECIA
     Dosage: 5 MG, UNK
     Route: 048
     Dates: start: 2008
  2. PROPECIA [Suspect]
     Active Substance: FINASTERIDE
     Dosage: UNK MG, UNK
     Route: 048
     Dates: start: 2006
  3. PROSCAR [Suspect]
     Active Substance: FINASTERIDE
     Dosage: 5 MG, UNK
     Route: 048
     Dates: start: 2009

REACTIONS (3)
  - Erectile dysfunction [Unknown]
  - Sexual dysfunction [Unknown]
  - Drug administration error [Unknown]

NARRATIVE: CASE EVENT DATE: 2008
